FAERS Safety Report 17743016 (Version 1)
Quarter: 2020Q2

REPORT INFORMATION
  Report Type: Spontaneous
  Country: US (occurrence: US)
  Receive Date: 20200505
  Receipt Date: 20200505
  Transmission Date: 20200714
  Serious: No
  Sender: FDA-Public Use
  Company Number: US-ROCHE-2384312

PATIENT
  Age: 60 Year
  Sex: Female

DRUGS (1)
  1. ESBRIET [Suspect]
     Active Substance: PIRFENIDONE
     Indication: IDIOPATHIC PULMONARY FIBROSIS
     Route: 048
     Dates: start: 20180725, end: 20190531

REACTIONS (4)
  - Nausea [Recovered/Resolved]
  - Rash [Unknown]
  - Lichen sclerosus [Unknown]
  - Headache [Unknown]

NARRATIVE: CASE EVENT DATE: 201901
